FAERS Safety Report 25295992 (Version 2)
Quarter: 2025Q3

REPORT INFORMATION
  Report Type: Spontaneous
  Country: US (occurrence: US)
  Receive Date: 20250511
  Receipt Date: 20250923
  Transmission Date: 20251021
  Serious: No
  Sender: SANOFI AVENTIS
  Company Number: US-SA-2025SA133131

PATIENT
  Sex: Male
  Weight: 75.91 kg

DRUGS (8)
  1. DUPIXENT [Suspect]
     Active Substance: DUPILUMAB
     Indication: Eosinophilic oesophagitis
     Dosage: 300 MG, QW
     Route: 058
     Dates: start: 20250131
  2. DUPIXENT [Suspect]
     Active Substance: DUPILUMAB
     Dosage: 300 MG, Q10D
     Route: 058
     Dates: start: 2025
  3. IBUPROFEN [Concomitant]
     Active Substance: IBUPROFEN
  4. TYLENOL [Concomitant]
     Active Substance: ACETAMINOPHEN
  5. VITAMIN D2 [Concomitant]
     Active Substance: ERGOCALCIFEROL
  6. SINGULAIR [Concomitant]
     Active Substance: MONTELUKAST SODIUM
  7. FLUTICASONE PROPIONATE [Concomitant]
     Active Substance: FLUTICASONE PROPIONATE
  8. ALLEGRA D-12 HOUR [Concomitant]
     Active Substance: FEXOFENADINE HYDROCHLORIDE\PSEUDOEPHEDRINE HYDROCHLORIDE

REACTIONS (6)
  - Pain [Unknown]
  - Inappropriate schedule of product administration [Unknown]
  - Multiple allergies [Not Recovered/Not Resolved]
  - Eating disorder [Not Recovered/Not Resolved]
  - Dysphagia [Not Recovered/Not Resolved]
  - Gastrooesophageal reflux disease [Not Recovered/Not Resolved]
